FAERS Safety Report 7357683-6 (Version None)
Quarter: 2011Q1

REPORT INFORMATION
  Report Type: 
  Country: None (occurrence: None)
  Receive Date: 20110307
  Receipt Date: 20100830
  Transmission Date: 20110831
  Serious: No
  Sender: FDA-Public Use
  Company Number: AEUSA201000314

PATIENT
  Age: 66 Year
  Sex: Female

DRUGS (8)
  1. SYNTHROID [Concomitant]
  2. PRAVASTATIN [Concomitant]
  3. ETHAMBUTOL HYDROCHLORIDE [Concomitant]
  4. PROLASTIN-C [Suspect]
     Indication: ALPHA-1 ANTI-TRYPSIN DEFICIENCY
     Dosage: 4000 MG, QW, IV
     Route: 042
     Dates: start: 20100601
  5. RIFAMPIN [Concomitant]
  6. NORVASC [Concomitant]
  7. BIAXIN [Concomitant]
  8. PROLASTIN [Concomitant]

REACTIONS (2)
  - ASTHENIA [None]
  - DIZZINESS [None]
